FAERS Safety Report 4985455-6 (Version None)
Quarter: 2006Q2

REPORT INFORMATION
  Report Type: 
  Country: None (occurrence: None)
  Receive Date: 20060428
  Receipt Date: 20050303
  Transmission Date: 20061013
  Serious: No
  Sender: FDA-Public Use
  Company Number: US-GLAXOSMITHKLINE-A0548193A

PATIENT
  Age: 3 Year
  Sex: Male

DRUGS (5)
  1. FLOVENT [Suspect]
     Indication: ASTHMA
     Dosage: 2PUFF PER DAY
     Route: 055
     Dates: start: 20031101, end: 20040501
  2. ALBUTEROL SULFATE AUTOHALER [Concomitant]
  3. SINGULAIR [Concomitant]
  4. ZITHROMAX [Concomitant]
  5. AUGMENTIN '125' [Concomitant]

REACTIONS (5)
  - CHEST PAIN [None]
  - MEDICATION ERROR [None]
  - OVERDOSE [None]
  - PSYCHOMOTOR HYPERACTIVITY [None]
  - RESPIRATORY TRACT INFECTION [None]
